FAERS Safety Report 9242528 (Version 1)
Quarter: 2013Q2

REPORT INFORMATION
  Report Type: Spontaneous
  Country: US (occurrence: US)
  Receive Date: 20130419
  Receipt Date: 20130419
  Transmission Date: 20140414
  Serious: Yes (Other)
  Sender: FDA-Public Use
  Company Number: US-PFIZER INC-2013122419

PATIENT
  Age: 31 Year
  Sex: Male
  Weight: 48.98 kg

DRUGS (3)
  1. VANCOMYCIN HCL [Suspect]
     Dosage: UNK
  2. PIPERACILLIN/TAZOBACTAM [Suspect]
     Dosage: UNK
  3. LEVAQUIN [Suspect]
     Dosage: UNK

REACTIONS (4)
  - No therapeutic response [Unknown]
  - Hypoxia [Unknown]
  - Condition aggravated [Unknown]
  - Lung disorder [Unknown]
